FAERS Safety Report 8251711-1 (Version None)
Quarter: 2012Q2

REPORT INFORMATION
  Report Type: 
  Country: None (occurrence: None)
  Receive Date: 20120402
  Receipt Date: 20120330
  Transmission Date: 20120825
  Serious: Yes (Hospitalization)
  Sender: FDA-Public Use
  Company Number: DE-ABBOTT-12P-062-0919944-00

PATIENT
  Sex: Female

DRUGS (2)
  1. HUMIRA [Suspect]
     Indication: CROHN'S DISEASE
     Route: 058
     Dates: start: 20110307, end: 20120220
  2. HUMIRA [Suspect]
     Dates: start: 20120315

REACTIONS (2)
  - INTESTINAL STENOSIS [None]
  - GASTROINTESTINAL INFLAMMATION [None]
